FAERS Safety Report 7630161-2 (Version None)
Quarter: 2011Q3

REPORT INFORMATION
  Report Type: 
  Country: None (occurrence: None)
  Receive Date: 20110722
  Receipt Date: 20110712
  Transmission Date: 20111222
  Serious: Yes (Other)
  Sender: FDA-Public Use
  Company Number: US-CELGENEUS-163-21880-11071295

PATIENT
  Sex: Male
  Weight: 106.69 kg

DRUGS (4)
  1. CALCIUM WITH VITAMIN D [Concomitant]
     Dosage: 600
     Route: 065
  2. REVLIMID [Suspect]
     Indication: MULTIPLE MYELOMA
     Dosage: 10 MILLIGRAM
     Route: 048
     Dates: start: 20110428
  3. VITAMIN B-12 [Concomitant]
     Route: 065
  4. POTASSIUM [Concomitant]
     Route: 065

REACTIONS (1)
  - RENAL DISORDER [None]
